FAERS Safety Report 14779259 (Version 1)
Quarter: 2018Q2

REPORT INFORMATION
  Report Type: Report from Study
  Country: ES (occurrence: ES)
  Receive Date: 20180419
  Receipt Date: 20180419
  Transmission Date: 20180711
  Serious: Yes (Hospitalization, Other)
  Sender: FDA-Public Use
  Company Number: ES-PFIZER INC-2018145272

PATIENT
  Age: 73 Year
  Sex: Male
  Weight: 81.6 kg

DRUGS (18)
  1. IRINOTECAN HCL [Suspect]
     Active Substance: IRINOTECAN HYDROCHLORIDE
     Indication: COLORECTAL CANCER METASTATIC
     Dosage: 320 MG, CYCLIC (CYCLE 1)
     Route: 041
     Dates: start: 20150527, end: 20150527
  2. LEUCOVORIN. [Suspect]
     Active Substance: LEUCOVORIN
     Dosage: 640 MG, CYCLIC, (DATE OF LAST CYCLE BEFORE ADVERSE REACTION, CYCLE 2)
     Route: 041
     Dates: start: 20150617, end: 20150617
  3. 5-FU /00098801/ [Suspect]
     Active Substance: FLUOROURACIL
     Dosage: 3800 MG, CYCLIC
     Route: 041
     Dates: start: 20150617, end: 20150617
  4. ESOMEPRAZOL /01479301/ [Concomitant]
     Active Substance: ESOMEPRAZOLE
     Dosage: 640 MG, CYCLE 2
  5. LYRICA [Concomitant]
     Active Substance: PREGABALIN
     Dosage: 640 MG, (CYCLE 2)
  6. LEUCOVORIN. [Suspect]
     Active Substance: LEUCOVORIN
     Indication: COLORECTAL CANCER METASTATIC
     Dosage: 720 MG, CYCLIC
     Route: 041
     Dates: start: 20150527, end: 20150527
  7. AFLIBERCEPT [Suspect]
     Active Substance: AFLIBERCEPT
     Indication: COLORECTAL CANCER METASTATIC
     Dosage: 360 MG, CYCLIC (CYCLE 1)
     Route: 041
     Dates: start: 20150527, end: 20150527
  8. AFLIBERCEPT [Suspect]
     Active Substance: AFLIBERCEPT
     Dosage: 360 MG, CYCLIC (CYCLE 2)
     Route: 041
     Dates: start: 20150617, end: 20150617
  9. 5-FU /00098801/ [Suspect]
     Active Substance: FLUOROURACIL
     Dosage: 4300 MG, CYCLIC
     Route: 041
     Dates: start: 20150527, end: 20150527
  10. 5-FU /00098801/ [Suspect]
     Active Substance: FLUOROURACIL
     Dosage: 640 MG, CYCLIC
     Route: 040
     Dates: start: 20150617, end: 20150617
  11. SITAGLIPTIN PHOSPHATE [Concomitant]
     Active Substance: SITAGLIPTIN PHOSPHATE
     Dosage: 640 MG, (CYCLE 2)
  12. IRINOTECAN HCL [Suspect]
     Active Substance: IRINOTECAN HYDROCHLORIDE
     Dosage: 290 MG, CYCLIC (CYCLE 2)
     Route: 041
     Dates: start: 20150617, end: 20150617
  13. 5-FU /00098801/ [Suspect]
     Active Substance: FLUOROURACIL
     Indication: COLORECTAL CANCER METASTATIC
     Dosage: 720 MG, CYCLIC
     Route: 040
     Dates: start: 20150527, end: 20150527
  14. ESOMEPRAZOL /01479301/ [Concomitant]
     Active Substance: ESOMEPRAZOLE
     Indication: PROPHYLAXIS
     Dosage: 720 MG, CYCLE 1
     Dates: start: 2000
  15. LYRICA [Concomitant]
     Active Substance: PREGABALIN
     Dosage: 720 MG, (CYCLE 1)
     Dates: start: 20150526
  16. ATORVASTATIN [Concomitant]
     Active Substance: ATORVASTATIN
     Dosage: 720 MG, (CYCLE 1)
     Dates: start: 2000
  17. SITAGLIPTIN PHOSPHATE [Concomitant]
     Active Substance: SITAGLIPTIN PHOSPHATE
     Dosage: 720 MG, (CYCLE 1)
     Dates: start: 20130101
  18. ATORVASTATIN [Concomitant]
     Active Substance: ATORVASTATIN
     Dosage: 640 MG, (CYCLE 2)

REACTIONS (5)
  - Confusional state [Recovered/Resolved]
  - Infection [Recovered/Resolved]
  - Abdominal pain [Recovered/Resolved]
  - Delirium [Recovered/Resolved]
  - Cholecystitis acute [Recovered/Resolved]

NARRATIVE: CASE EVENT DATE: 20150701
